FAERS Safety Report 18353199 (Version 1)
Quarter: 2020Q4

REPORT INFORMATION
  Report Type: Spontaneous
  Country: FR (occurrence: FR)
  Receive Date: 20201007
  Receipt Date: 20201007
  Transmission Date: 20210114
  Serious: Yes (Hospitalization)
  Sender: FDA-Public Use
  Company Number: FR-TEVA-2020-FR-1835397

PATIENT
  Age: 68 Year
  Sex: Female
  Weight: 80 kg

DRUGS (5)
  1. PERINDOPRIL [Suspect]
     Active Substance: PERINDOPRIL
     Indication: INFARCTION
     Dosage: NP
     Route: 048
     Dates: start: 20200515, end: 20200521
  2. ELIQUIS [Suspect]
     Active Substance: APIXABAN
     Indication: INFARCTION
     Dosage: NP
     Route: 048
     Dates: start: 20200504, end: 20200521
  3. NEBIVOLOL. [Suspect]
     Active Substance: NEBIVOLOL
     Indication: INFARCTION
     Dosage: NP
     Route: 048
     Dates: start: 20200504, end: 20200521
  4. FUROSEMIDE. [Suspect]
     Active Substance: FUROSEMIDE
     Indication: CARDIAC FAILURE
     Dosage: NP
     Route: 048
     Dates: start: 20200504, end: 20200521
  5. GADOLINIUM [Suspect]
     Active Substance: GADOLINIUM
     Indication: MAGNETIC RESONANCE IMAGING
     Dosage: NP
     Route: 042
     Dates: start: 20200515, end: 20200515

REACTIONS (2)
  - Pruritus [Recovered/Resolved]
  - Toxic skin eruption [Recovering/Resolving]

NARRATIVE: CASE EVENT DATE: 20200515
